FAERS Safety Report 14918494 (Version 2)
Quarter: 2018Q2

REPORT INFORMATION
  Report Type: Spontaneous
  Country: CH (occurrence: CH)
  Receive Date: 20180521
  Receipt Date: 20180601
  Transmission Date: 20180711
  Serious: No
  Sender: FDA-Public Use
  Company Number: CH-MALLINCKRODT-T201802037

PATIENT
  Age: 62 Year
  Sex: Male

DRUGS (6)
  1. IVIGLOB EX [Concomitant]
     Active Substance: HUMAN IMMUNOGLOBULIN G
     Dosage: 100 MG/KG
     Route: 042
  2. METHYLPREDNISOLONE. [Concomitant]
     Active Substance: METHYLPREDNISOLONE
     Indication: PRODUCT USED FOR UNKNOWN INDICATION
     Dosage: 750-1000MG, ONCE DAILY FOR 3 DAYS
     Route: 042
  3. UVADEX [Suspect]
     Active Substance: METHOXSALEN
     Indication: LUNG TRANSPLANT
     Dosage: UNKNOWN
     Route: 057
  4. IVIGLOB EX [Concomitant]
     Active Substance: HUMAN IMMUNOGLOBULIN G
     Indication: PRODUCT USED FOR UNKNOWN INDICATION
     Dosage: 2 G/KG
     Route: 042
  5. RITUXIMAB. [Concomitant]
     Active Substance: RITUXIMAB
     Indication: PRODUCT USED FOR UNKNOWN INDICATION
     Dosage: 375 MG/BODY SURFACE
     Route: 065
  6. UVADEX [Suspect]
     Active Substance: METHOXSALEN
     Indication: PULMONARY HYPERTENSION

REACTIONS (1)
  - Product use in unapproved indication [Unknown]
